FAERS Safety Report 5960469-8 (Version None)
Quarter: 2008Q4

REPORT INFORMATION
  Report Type: 
  Country: None (occurrence: None)
  Receive Date: 20081118
  Receipt Date: 20081110
  Transmission Date: 20090506
  Serious: Yes (Other)
  Sender: FDA-Public Use
  Company Number: 1000001625

PATIENT
  Age: 52 Year
  Sex: Female

DRUGS (1)
  1. CARBAMAZEPINE [Suspect]
     Indication: FACIAL PAIN
     Dosage: 600 MG (200 MG, 3 IN 1 D); 200 MG (200 MG, 1 N 1 17)

REACTIONS (2)
  - ALOPECIA [None]
  - DERMATITIS PSORIASIFORM [None]
